FAERS Safety Report 7510427-7 (Version None)
Quarter: 2011Q2

REPORT INFORMATION
  Report Type: 
  Country: None (occurrence: None)
  Receive Date: 20110527
  Receipt Date: 20110523
  Transmission Date: 20111010
  Serious: Yes (Hospitalization, Congenital Anomaly, Other)
  Sender: FDA-Public Use
  Company Number: US-RB-021296-11

PATIENT
  Sex: Male

DRUGS (3)
  1. SUBOXONE [Suspect]
     Route: 064
     Dates: start: 20100401, end: 20100617
  2. SUBUTEX [Suspect]
     Indication: PAIN
     Route: 064
     Dates: start: 20100618, end: 20110107
  3. SUBOXONE [Suspect]
     Indication: PAIN
     Route: 064
     Dates: start: 20100406, end: 20100401

REACTIONS (2)
  - HYPOPLASTIC LEFT HEART SYNDROME [None]
  - DRUG EXPOSURE DURING PREGNANCY [None]
